FAERS Safety Report 7894194-3 (Version None)
Quarter: 2011Q4

REPORT INFORMATION
  Report Type: 
  Country: None (occurrence: None)
  Receive Date: 20111104
  Receipt Date: 20111026
  Transmission Date: 20120403
  Serious: Yes (Hospitalization)
  Sender: FDA-Public Use
  Company Number: US-ELI_LILLY_AND_COMPANY-US201110007910

PATIENT
  Sex: Female

DRUGS (12)
  1. HUMALOG [Suspect]
     Dosage: UNK, PRN
     Dates: start: 20090101
  2. HUMALOG [Suspect]
     Dosage: 9 U, EACH EVENING
  3. HUMALOG [Suspect]
     Dosage: 3 U, OTHER
  4. HUMALOG [Suspect]
     Indication: DIABETES MELLITUS
     Dosage: UNK, PRN
     Dates: start: 20090101
  5. HUMALOG [Suspect]
     Dosage: 6 U, EACH EVENING
  6. LANTUS [Concomitant]
     Dosage: 18 U, EACH EVENING
  7. HUMALOG [Suspect]
     Dosage: 9 U, EACH EVENING
  8. HUMALOG [Suspect]
     Dosage: 3 U, OTHER
  9. HUMALOG [Suspect]
     Dosage: 6 U, EACH EVENING
  10. LANTUS [Concomitant]
     Indication: DIABETES MELLITUS
     Dosage: UNK
  11. HUMALOG [Suspect]
     Dosage: 9 U, OTHER
  12. HUMALOG [Suspect]
     Dosage: 9 U, OTHER

REACTIONS (5)
  - BLOOD GLUCOSE FLUCTUATION [None]
  - HIP FRACTURE [None]
  - UNDERDOSE [None]
  - BLOOD GLUCOSE INCREASED [None]
  - BLOOD GLUCOSE DECREASED [None]
